FAERS Safety Report 7537941-2 (Version None)
Quarter: 2011Q2

REPORT INFORMATION
  Report Type: 
  Country: None (occurrence: None)
  Receive Date: 20110609
  Receipt Date: 20110530
  Transmission Date: 20111010
  Serious: Yes (Hospitalization, Other)
  Sender: FDA-Public Use
  Company Number: KR-UCBSA-031591

PATIENT
  Sex: Female
  Weight: 48 kg

DRUGS (3)
  1. PREDNICARBATE [Concomitant]
     Indication: SKIN HYPERPIGMENTATION
     Dosage: 100
     Route: 061
     Dates: start: 20110207
  2. CERTOLIZUMAB PEGOL [Suspect]
     Indication: RHEUMATOID ARTHRITIS
     Route: 058
     Dates: start: 20110404, end: 20110418
  3. RANITIDINE [Concomitant]
     Indication: PROPHYLAXIS AGAINST GASTROINTESTINAL ULCER
     Route: 048
     Dates: start: 20101101

REACTIONS (3)
  - ANAL ABSCESS [None]
  - PYREXIA [None]
  - CHILLS [None]
